FAERS Safety Report 11835508 (Version 1)
Quarter: 2015Q4

REPORT INFORMATION
  Report Type: Spontaneous
  Country: US (occurrence: None)
  Receive Date: 20151214
  Receipt Date: 20151214
  Transmission Date: 20160305
  Serious: Yes (Life-Threatening, Hospitalization, Disabling, Other)
  Sender: FDA-Public Use
  Company Number: None

PATIENT
  Age: 28 Year
  Sex: Female
  Weight: 58.97 kg

DRUGS (6)
  1. VITAMIN [Concomitant]
     Active Substance: VITAMINS
  2. EYE DROPS [Concomitant]
     Active Substance: TETRAHYDROZOLINE HYDROCHLORIDE
  3. FIBER [Concomitant]
     Active Substance: PSYLLIUM HUSK
  4. CLONAZEPAM. [Suspect]
     Active Substance: CLONAZEPAM
     Indication: THINKING ABNORMAL
     Dosage: 5 YEARS 2007? TO 2011, 1 PILL
     Route: 048
     Dates: start: 2007, end: 2011
  5. IBUPROFIN [Concomitant]
  6. CLONAZEPAM. [Suspect]
     Active Substance: CLONAZEPAM
     Indication: ANXIETY
     Dosage: 5 YEARS 2007? TO 2011, 1 PILL
     Route: 048
     Dates: start: 2007, end: 2011

REACTIONS (5)
  - Anger [None]
  - Affective disorder [None]
  - Drug withdrawal syndrome [None]
  - Drug dependence [None]
  - Imprisonment [None]

NARRATIVE: CASE EVENT DATE: 20110406
